FAERS Safety Report 17884350 (Version 1)
Quarter: 2020Q2

REPORT INFORMATION
  Report Type: Spontaneous
  Country: US (occurrence: US)
  Receive Date: 20200611
  Receipt Date: 20200611
  Transmission Date: 20200714
  Serious: No
  Sender: FDA-Public Use
  Company Number: US-PFIZER INC-2020226952

PATIENT
  Age: 59 Year
  Sex: Female
  Weight: 92.99 kg

DRUGS (2)
  1. SULFASALAZINE. [Suspect]
     Active Substance: SULFASALAZINE
     Indication: RHEUMATOID ARTHRITIS
     Dosage: 1500 MG, 2X/DAY (500MG; THREE TABLETS BY MOUTH TWICE DAILY)
     Route: 048
     Dates: start: 2014
  2. METHOTREXATE. [Suspect]
     Active Substance: METHOTREXATE
     Indication: RHEUMATOID ARTHRITIS
     Dosage: 20 MG, WEEKLY (EIGHT 2.5MG TABLETS BY MOUTH ONCE WEEKLY)
     Route: 048
     Dates: start: 2014

REACTIONS (3)
  - Scoliosis [Unknown]
  - Body height decreased [Unknown]
  - Therapeutic response unexpected [Unknown]

NARRATIVE: CASE EVENT DATE: 2014
